FAERS Safety Report 25863441 (Version 1)
Quarter: 2025Q3

REPORT INFORMATION
  Report Type: Spontaneous
  Country: GB (occurrence: GB)
  Receive Date: 20250930
  Receipt Date: 20250930
  Transmission Date: 20251020
  Serious: Yes (Other)
  Sender: RANBAXY
  Company Number: GB-SUN PHARMACEUTICAL INDUSTRIES LTD-2025RR-528866

PATIENT
  Age: 89 Year
  Sex: Female
  Weight: 60 kg

DRUGS (33)
  1. CODEINE [Suspect]
     Active Substance: CODEINE
     Indication: Product used for unknown indication
     Route: 048
  2. NICORANDIL [Concomitant]
     Active Substance: NICORANDIL
     Indication: Ill-defined disorder
     Route: 065
     Dates: start: 20250501
  3. ACETAMINOPHEN [Concomitant]
     Active Substance: ACETAMINOPHEN
     Indication: Ill-defined disorder
     Route: 065
     Dates: start: 20250501
  4. QUININE SULFATE [Concomitant]
     Active Substance: QUININE SULFATE
     Indication: Ill-defined disorder
     Route: 065
     Dates: start: 20250501
  5. VALUPAK MULTIVITAMIN + MINERAL [Concomitant]
     Indication: Ill-defined disorder
     Route: 065
     Dates: start: 20250501
  6. HYALURONATE SODIUM\TREHALOSE [Concomitant]
     Active Substance: HYALURONATE SODIUM\TREHALOSE
     Indication: Ill-defined disorder
     Route: 065
     Dates: start: 20250521, end: 20250901
  7. FERROUS SULFATE [Concomitant]
     Active Substance: FERROUS SULFATE
     Indication: Ill-defined disorder
     Route: 065
     Dates: start: 20250806
  8. Hylo night [Concomitant]
     Indication: Ill-defined disorder
     Route: 065
     Dates: start: 20250808
  9. Adcal [Concomitant]
     Indication: Ill-defined disorder
     Route: 065
     Dates: start: 20250812
  10. DOCUSATE SODIUM [Concomitant]
     Active Substance: DOCUSATE SODIUM
     Indication: Ill-defined disorder
     Route: 065
     Dates: start: 20250812
  11. SENNA [Concomitant]
     Active Substance: SENNOSIDES
     Indication: Ill-defined disorder
     Route: 065
     Dates: start: 20250812
  12. FREESTYLE LIBRE 2 PLUS [Concomitant]
     Indication: Ill-defined disorder
     Route: 065
     Dates: start: 20250901
  13. PROLIA [Concomitant]
     Active Substance: DENOSUMAB
     Indication: Ill-defined disorder
     Route: 065
     Dates: start: 20250901
  14. COCODAMOL [Concomitant]
     Active Substance: ACETAMINOPHEN\CODEINE PHOSPHATE
     Indication: Ill-defined disorder
     Route: 065
     Dates: start: 20250811, end: 20250818
  15. NOVORAPID [Concomitant]
     Active Substance: INSULIN ASPART
     Indication: Ill-defined disorder
     Route: 065
     Dates: start: 20230818
  16. AAQEYE HA [Concomitant]
     Indication: Ill-defined disorder
     Route: 065
     Dates: start: 20241119, end: 20250812
  17. NITROGLYCERIN [Concomitant]
     Active Substance: NITROGLYCERIN
     Indication: Ill-defined disorder
     Route: 065
     Dates: start: 20241119
  18. LANTUS [Concomitant]
     Active Substance: INSULIN GLARGINE
     Indication: Ill-defined disorder
     Route: 065
     Dates: start: 20241119
  19. Sharp ps [Concomitant]
     Indication: Ill-defined disorder
     Route: 065
     Dates: start: 20241119
  20. TIMOLOL [Concomitant]
     Active Substance: TIMOLOL
     Indication: Ill-defined disorder
     Route: 065
     Dates: start: 20241119
  21. Tricare [Concomitant]
     Indication: Ill-defined disorder
     Route: 065
     Dates: start: 20241119
  22. VOLTAROL [Concomitant]
     Active Substance: DICLOFENAC SODIUM
     Indication: Ill-defined disorder
     Route: 065
     Dates: start: 20241119, end: 20250806
  23. CITALOPRAM [Concomitant]
     Active Substance: CITALOPRAM
     Indication: Ill-defined disorder
     Route: 065
     Dates: start: 20250310
  24. APIXABAN [Concomitant]
     Active Substance: APIXABAN
     Indication: Ill-defined disorder
     Route: 065
     Dates: start: 20250501
  25. ATORVASTATIN [Concomitant]
     Active Substance: ATORVASTATIN
     Indication: Ill-defined disorder
     Route: 065
     Dates: start: 20250501
  26. BISOPROLOL [Concomitant]
     Active Substance: BISOPROLOL
     Indication: Ill-defined disorder
     Route: 065
     Dates: start: 20250501
  27. CALCEOS [Concomitant]
     Active Substance: CALCIUM CARBONATE\CHOLECALCIFEROL
     Indication: Ill-defined disorder
     Route: 065
     Dates: start: 20250501, end: 20250806
  28. FUROSEMIDE [Concomitant]
     Active Substance: FUROSEMIDE
     Indication: Ill-defined disorder
     Route: 065
     Dates: start: 20250501
  29. GLUCORX NEXUS [Concomitant]
     Indication: Ill-defined disorder
     Route: 065
     Dates: start: 20250501
  30. LANSOPRAZOLE [Concomitant]
     Active Substance: LANSOPRAZOLE
     Indication: Ill-defined disorder
     Route: 065
     Dates: start: 20250501
  31. POLYETHYLENE GLYCOL 3350\POTASSIUM CHLORIDE\SODIUM BICARBONATE\SODIUM [Concomitant]
     Active Substance: POLYETHYLENE GLYCOL 3350\POTASSIUM CHLORIDE\SODIUM BICARBONATE\SODIUM CHLORIDE
     Indication: Ill-defined disorder
     Route: 065
     Dates: start: 20250501
  32. LEVOTHYROXINE [Concomitant]
     Active Substance: LEVOTHYROXINE
     Indication: Ill-defined disorder
     Route: 065
     Dates: start: 20250501
  33. METFORMIN [Concomitant]
     Active Substance: METFORMIN HYDROCHLORIDE
     Indication: Ill-defined disorder
     Route: 065
     Dates: start: 20250501

REACTIONS (1)
  - Confusional state [Recovered/Resolved]
